FAERS Safety Report 9657176 (Version 3)
Quarter: 2013Q4

REPORT INFORMATION
  Report Type: Spontaneous
  Country: DE (occurrence: DE)
  Receive Date: 20131030
  Receipt Date: 20131127
  Transmission Date: 20140711
  Serious: Yes (Life-Threatening, Hospitalization, Other)
  Sender: FDA-Public Use
  Company Number: DE-JNJFOC-20131017107

PATIENT
  Age: 72 Year
  Sex: Female

DRUGS (4)
  1. XARELTO [Suspect]
     Indication: EMBOLISM VENOUS
     Route: 048
     Dates: start: 20121219, end: 20131007
  2. XARELTO [Suspect]
     Indication: PULMONARY EMBOLISM
     Route: 048
     Dates: start: 20121219, end: 20131007
  3. PANTOPRAZOLE [Concomitant]
     Route: 065
  4. RAMIPRIL [Concomitant]
     Route: 065

REACTIONS (4)
  - Pulmonary embolism [Unknown]
  - Embolism venous [Unknown]
  - Lower gastrointestinal haemorrhage [Recovered/Resolved]
  - Drug ineffective [Unknown]
